FAERS Safety Report 13893881 (Version 1)
Quarter: 2017Q3

REPORT INFORMATION
  Report Type: Spontaneous
  Country: US (occurrence: US)
  Receive Date: 20170822
  Receipt Date: 20170822
  Transmission Date: 20171127
  Serious: No
  Sender: FDA-Public Use
  Company Number: US-TARO-2016TAR00870

PATIENT
  Sex: Female

DRUGS (2)
  1. CLOBETASOL PROPIONATE CREAM USP 0.05% [Suspect]
     Active Substance: CLOBETASOL PROPIONATE
  2. CLOBETASOL PROPIONATE CREAM USP 0.05% (ACTAVIS) [Suspect]
     Active Substance: CLOBETASOL PROPIONATE

REACTIONS (3)
  - Alopecia [Unknown]
  - Sensory disturbance [Not Recovered/Not Resolved]
  - Hypersensitivity [Not Recovered/Not Resolved]
